FAERS Safety Report 10838998 (Version 4)
Quarter: 2015Q2

REPORT INFORMATION
  Report Type: Spontaneous
  Country: US (occurrence: None)
  Receive Date: 20150218
  Receipt Date: 20150408
  Transmission Date: 20150821
  Serious: Yes (Death, Life-Threatening, Hospitalization)
  Sender: FDA-Public Use
  Company Number: 1713747-2015-99960

PATIENT
  Age: 26 Year
  Sex: Female
  Weight: 75 kg

DRUGS (19)
  1. ERGOCALCIFEROL. [Concomitant]
     Active Substance: ERGOCALCIFEROL
  2. GENTAMICIN. [Concomitant]
     Active Substance: GENTAMICIN
  3. DELFLEX [Suspect]
     Active Substance: CALCIUM CHLORIDE\DEXTROSE MONOHYDRATE\MAGNESIUM CHLORIDE\SODIUM CHLORIDE\SODIUM LACTATE
     Indication: CHRONIC KIDNEY DISEASE
     Route: 033
     Dates: start: 20141231, end: 20150107
  4. METHYLDOPA. [Concomitant]
     Active Substance: METHYLDOPA
  5. SEVELAMER [Concomitant]
     Active Substance: SEVELAMER
  6. INSULIN ASPART [Concomitant]
     Active Substance: INSULIN ASPART
  7. INSULIN DETEMIR [Concomitant]
     Active Substance: INSULIN DETEMIR
  8. LIBERTY CYCLER [Concomitant]
     Active Substance: DEVICE
  9. AMLODIPINE [Concomitant]
     Active Substance: AMLODIPINE BESYLATE
  10. ATORVASTATIN [Concomitant]
     Active Substance: ATORVASTATIN
  11. CLONIDINE. [Concomitant]
     Active Substance: CLONIDINE
  12. KEPPRA [Concomitant]
     Active Substance: LEVETIRACETAM
  13. LISINOPRIL. [Concomitant]
     Active Substance: LISINOPRIL
  14. METOCLOPRAMIDE. [Concomitant]
     Active Substance: METOCLOPRAMIDE
  15. MULTIVITAMIN [Concomitant]
     Active Substance: VITAMINS
  16. NEPHRO-CAPS [Concomitant]
  17. LIBERTY CYCLER SET [Concomitant]
     Active Substance: DEVICE
  18. HYDRALAZINE [Concomitant]
     Active Substance: HYDRALAZINE HYDROCHLORIDE
  19. CARVEDILOL. [Concomitant]
     Active Substance: CARVEDILOL

REACTIONS (10)
  - Lactic acidosis [None]
  - Metabolic acidosis [None]
  - Blood pressure increased [None]
  - Hyperkalaemia [None]
  - Pain in extremity [None]
  - Seizure [None]
  - Myocardial infarction [None]
  - Ventricular fibrillation [None]
  - Cardiac arrest [None]
  - Pulseless electrical activity [None]

NARRATIVE: CASE EVENT DATE: 20141231
